FAERS Safety Report 7346740-6 (Version None)
Quarter: 2011Q1

REPORT INFORMATION
  Report Type: 
  Country: None (occurrence: None)
  Receive Date: 20110311
  Receipt Date: 20110302
  Transmission Date: 20110831
  Serious: Yes (Hospitalization, Other)
  Sender: FDA-Public Use
  Company Number: IL-BRISTOL-MYERS SQUIBB COMPANY-15597495

PATIENT
  Age: 80 Year
  Sex: Male

DRUGS (1)
  1. ERBITUX [Suspect]
     Indication: HEAD AND NECK CANCER
     Dosage: ERBITUX 5MG/ML
     Dates: start: 20101201, end: 20110201

REACTIONS (4)
  - MYOCARDIAL ISCHAEMIA [None]
  - TROPONIN INCREASED [None]
  - PYREXIA [None]
  - DYSPNOEA [None]
